FAERS Safety Report 4363700-8 (Version None)
Quarter: 2004Q2

REPORT INFORMATION
  Report Type: 
  Country: None (occurrence: None)
  Receive Date: 20040524
  Receipt Date: 20031117
  Transmission Date: 20050107
  Serious: Yes (Death, Hospitalization)
  Sender: FDA-Public Use
  Company Number: GB-ROCHE-351789

PATIENT
  Age: 60 Year
  Sex: Male

DRUGS (6)
  1. CAPECITABINE [Suspect]
     Dosage: CONTINOUS DOSING.
     Route: 048
     Dates: start: 20030407, end: 20030515
  2. MORPHINE SULFATE [Concomitant]
     Dates: start: 20030502
  3. ORAMORPH SR [Concomitant]
     Dates: start: 20030502
  4. ACETAMINOPHEN [Concomitant]
     Dates: start: 20030215
  5. SIMETHICONE [Concomitant]
     Dates: start: 20030515
  6. DICLOFENAC [Concomitant]
     Route: 048
     Dates: end: 20030601

REACTIONS (4)
  - ACIDOSIS [None]
  - GASTROINTESTINAL ULCER HAEMORRHAGE [None]
  - INTESTINAL ANASTOMOSIS [None]
  - INTESTINAL INFARCTION [None]
